FAERS Safety Report 6229373-4 (Version None)
Quarter: 2009Q2

REPORT INFORMATION
  Report Type: 
  Country: None (occurrence: None)
  Receive Date: 20090615
  Receipt Date: 20090605
  Transmission Date: 20091009
  Serious: Yes (Other)
  Sender: FDA-Public Use
  Company Number: US-BAYER-200911763BCC

PATIENT
  Age: 66 Year
  Sex: Male
  Weight: 67 kg

DRUGS (8)
  1. ALEVE (CAPLET) [Suspect]
     Indication: BACK PAIN
     Dosage: TOTAL DAILY DOSE: 440 MG  UNIT DOSE: 220 MG
     Route: 048
     Dates: start: 20090603, end: 20090605
  2. ASPIRIN [Concomitant]
     Route: 065
  3. MULTI-VITAMIN [Concomitant]
     Route: 065
  4. FISH OIL [Concomitant]
     Route: 065
  5. CALCIUM SUPPLEMENT [Concomitant]
     Dosage: TOOK 1 CALCIUM SUPPLEMENT 3 X DAY
     Route: 065
  6. WALMART BRAND FIBER CAPS [Concomitant]
     Dosage: TOOK 1 CAPS 6 X DAY
     Route: 048
  7. FLEXAMIN [Concomitant]
     Route: 065
  8. ZOCOR [Concomitant]
     Route: 065

REACTIONS (2)
  - DRY MOUTH [None]
  - SOMNOLENCE [None]
